FAERS Safety Report 6718419-2 (Version None)
Quarter: 2010Q2

REPORT INFORMATION
  Report Type: 
  Country: None (occurrence: None)
  Receive Date: 20100504
  Receipt Date: 20100415
  Transmission Date: 20101027
  Serious: Yes (Other)
  Sender: FDA-Public Use
  Company Number: 7001160

PATIENT
  Age: 46 Year
  Sex: Female

DRUGS (4)
  1. REBIF [Suspect]
     Indication: DRUG USE FOR UNKNOWN INDICATION
     Dosage: 3 IN  1 WK; 44 MCG, 3 IN 1 WK, SUBCUTANEOUS
     Route: 058
     Dates: start: 20100308, end: 20100101
  2. REBIF [Suspect]
     Indication: DRUG USE FOR UNKNOWN INDICATION
     Dosage: 3 IN  1 WK; 44 MCG, 3 IN 1 WK, SUBCUTANEOUS
     Route: 058
     Dates: start: 20100101
  3. BOTRAX (ALL OTHER THERAPEUTIC PRODUCTS) [Concomitant]
  4. UNSPECIFIED THYROID MEDICATION (ALL OTHER THERAPEUTIC PRODUCTS) [Concomitant]

REACTIONS (10)
  - CARDIOMEGALY [None]
  - DEPRESSED MOOD [None]
  - FATIGUE [None]
  - HYPOAESTHESIA [None]
  - INJECTION SITE HAEMATOMA [None]
  - INJECTION SITE PAIN [None]
  - INTENTIONAL SELF-INJURY [None]
  - PAIN [None]
  - PULMONARY HYPERTENSION [None]
  - SUICIDAL IDEATION [None]
